FAERS Safety Report 18958191 (Version 1)
Quarter: 2021Q1

REPORT INFORMATION
  Report Type: Report from Study
  Country: US (occurrence: US)
  Receive Date: 20210302
  Receipt Date: 20210302
  Transmission Date: 20210420
  Serious: Yes (Death)
  Sender: FDA-Public Use
  Company Number: US-TAIHO ONCOLOGY  INC-EU-2021-00584

PATIENT
  Age: 61 Year
  Sex: Male
  Weight: 85.81 kg

DRUGS (8)
  1. DURAGESIC [Concomitant]
     Active Substance: FENTANYL
  2. MARINOL [Concomitant]
     Active Substance: DRONABINOL
  3. OXYCODONE [Concomitant]
     Active Substance: OXYCODONE
  4. COLACE [Concomitant]
     Active Substance: DOCUSATE SODIUM
  5. ZINC. [Concomitant]
     Active Substance: ZINC
  6. SENOKOT [Concomitant]
     Active Substance: SENNOSIDES
  7. LONSURF [Suspect]
     Active Substance: TIPIRACIL HYDROCHLORIDE\TRIFLURIDINE
     Indication: RECTAL CANCER
     Dosage: CYCLE UNKNOWN
     Route: 048
     Dates: start: 202011
  8. ZOFRAN [Concomitant]
     Active Substance: ONDANSETRON HYDROCHLORIDE

REACTIONS (1)
  - Death [Fatal]

NARRATIVE: CASE EVENT DATE: 20210217
